FAERS Safety Report 18915115 (Version 1)
Quarter: 2021Q1

REPORT INFORMATION
  Report Type: Other
  Country: CA (occurrence: CA)
  Receive Date: 20210219
  Receipt Date: 20210219
  Transmission Date: 20210420
  Serious: Yes (Hospitalization, Other)
  Sender: FDA-Public Use
  Company Number: CA-CELLTRION INC.-2021CA001968

PATIENT

DRUGS (18)
  1. BISOPROLOL [Concomitant]
     Active Substance: BISOPROLOL
  2. ATORVASTATIN CALCIUM. [Concomitant]
     Active Substance: ATORVASTATIN CALCIUM
  3. FOLIC ACID. [Concomitant]
     Active Substance: FOLIC ACID
  4. ACETYLSALICYLIC ACID [Concomitant]
     Active Substance: ASPIRIN
  5. SAXAGLIPTIN [Concomitant]
     Active Substance: SAXAGLIPTIN
  6. DIPHENHYDRAMINE HYDROCHLORIDE. [Concomitant]
     Active Substance: DIPHENHYDRAMINE HYDROCHLORIDE
     Indication: PREMEDICATION
     Dosage: 50 MG
     Route: 048
  7. DUTASTERIDE. [Concomitant]
     Active Substance: DUTASTERIDE
  8. ERGOCALCIFEROL. [Concomitant]
     Active Substance: ERGOCALCIFEROL
  9. METHYLPREDNISOLONE. [Concomitant]
     Active Substance: METHYLPREDNISOLONE
     Indication: PREMEDICATION
     Dosage: 100 MG
     Route: 042
  10. RAPAFLO [Concomitant]
     Active Substance: SILODOSIN
  11. ACETAMINOPHEN. [Concomitant]
     Active Substance: ACETAMINOPHEN
     Indication: PREMEDICATION
     Dosage: 1000 MG
     Route: 048
  12. FENOFIBRATE. [Concomitant]
     Active Substance: FENOFIBRATE
  13. JARDIANCE [Concomitant]
     Active Substance: EMPAGLIFLOZIN
  14. METHOTREXATE. [Concomitant]
     Active Substance: METHOTREXATE
     Route: 037
  15. RITUXIMAB (UNKNOWN) [Suspect]
     Active Substance: RITUXIMAB
     Indication: PEMPHIGOID
     Dosage: 1000 MG
     Route: 042
  16. METFORMIN [Concomitant]
     Active Substance: METFORMIN HYDROCHLORIDE
     Route: 065
  17. NITROGLYCERIN. [Concomitant]
     Active Substance: NITROGLYCERIN
  18. RAMIPRIL. [Concomitant]
     Active Substance: RAMIPRIL

REACTIONS (12)
  - Dust allergy [Not Recovered/Not Resolved]
  - Eye swelling [Not Recovered/Not Resolved]
  - Product use in unapproved indication [Not Recovered/Not Resolved]
  - Allergy to animal [Not Recovered/Not Resolved]
  - Iodine allergy [Not Recovered/Not Resolved]
  - Ocular hyperaemia [Not Recovered/Not Resolved]
  - Bronchitis [Not Recovered/Not Resolved]
  - Erythema [Not Recovered/Not Resolved]
  - Throat irritation [Not Recovered/Not Resolved]
  - Infusion related reaction [Not Recovered/Not Resolved]
  - Tinnitus [Not Recovered/Not Resolved]
  - Off label use [Not Recovered/Not Resolved]
